FAERS Safety Report 18346269 (Version 3)
Quarter: 2020Q4

REPORT INFORMATION
  Report Type: Spontaneous
  Country: JP (occurrence: JP)
  Receive Date: 20201006
  Receipt Date: 20201117
  Transmission Date: 20210114
  Serious: Yes (Hospitalization, Other)
  Sender: FDA-Public Use
  Company Number: JP-UCBSA-2020039016

PATIENT
  Age: 66 Year
  Sex: Female
  Weight: 53.5 kg

DRUGS (5)
  1. PENTCILLIN [Concomitant]
     Active Substance: PIPERACILLIN SODIUM
     Indication: PRODUCT USED FOR UNKNOWN INDICATION
     Dosage: 2 GRAM, 2X/DAY (BID)
     Route: 041
     Dates: start: 20200915, end: 20200921
  2. VIMPAT [Suspect]
     Active Substance: LACOSAMIDE
     Indication: EPILEPSY
     Dosage: 1ST ADMINISTRATION OF 50MG FROM EVENING AND LAST (2ND) ADMINISTRATION ON NEXT DAY MORNING
     Route: 041
     Dates: start: 20200916, end: 20200917
  3. ULTIVA [Concomitant]
     Active Substance: REMIFENTANIL HYDROCHLORIDE
     Indication: PRODUCT USED FOR UNKNOWN INDICATION
     Dosage: 2 MILLIGRAM, ONCE DAILY (QD)
     Route: 041
  4. EXACIN [ISEPAMICIN SULFATE] [Concomitant]
     Indication: PRODUCT USED FOR UNKNOWN INDICATION
     Dosage: 20 MILLIGRAM, ONCE DAILY (QD)
     Route: 029
     Dates: start: 20200917, end: 20200921
  5. ERIL [FASUDIL HYDROCHLORIDE] [Concomitant]
     Indication: PRODUCT USED FOR UNKNOWN INDICATION
     Dosage: 30 MILLIGRAM, 3X/DAY (TID)
     Route: 041
     Dates: start: 20200917, end: 20200929

REACTIONS (1)
  - Platelet count decreased [Recovered/Resolved]

NARRATIVE: CASE EVENT DATE: 20200917
